FAERS Safety Report 4733324-9 (Version None)
Quarter: 2005Q3

REPORT INFORMATION
  Report Type: 
  Country: None (occurrence: None)
  Receive Date: 20050725
  Receipt Date: 20041221
  Transmission Date: 20060218
  Serious: Yes (Death)
  Sender: FDA-Public Use
  Company Number: USA-2004-0018122

PATIENT
  Age: 39 Year
  Sex: Male
  Weight: 102 kg

DRUGS (10)
  1. MORPHINE SULFATE [Suspect]
  2. HYDROMORPHONE HCL [Suspect]
  3. VICODIN [Suspect]
  4. ETHANOL (ETHANOL) [Suspect]
  5. CLONAZEPAM [Suspect]
  6. OLANZAPINE [Suspect]
  7. AMBIEN [Suspect]
  8. NAPROXEN [Suspect]
  9. LEXAPRO [Concomitant]
  10. PREVACID [Concomitant]

REACTIONS (2)
  - ACCIDENTAL OVERDOSE [None]
  - MULTIPLE DRUG OVERDOSE [None]
